FAERS Safety Report 20963964 (Version 1)
Quarter: 2022Q2

REPORT INFORMATION
  Report Type: Spontaneous
  Country: US (occurrence: US)
  Receive Date: 20220615
  Receipt Date: 20220615
  Transmission Date: 20220720
  Serious: Yes (Other)
  Sender: FDA-Public Use
  Company Number: US-BRISTOL-MYERS SQUIBB COMPANY-2022-039634

PATIENT

DRUGS (2)
  1. IDHIFA [Suspect]
     Active Substance: ENASIDENIB MESYLATE
     Indication: Acute myeloid leukaemia
     Dosage: DOSE : UNAVAILABLE;     FREQ : UNAVAILABLE
  2. TIBSOVO [Suspect]
     Active Substance: IVOSIDENIB
     Indication: Product used for unknown indication

REACTIONS (3)
  - White blood cell count increased [Unknown]
  - Differentiation syndrome [Unknown]
  - Adverse reaction [Unknown]
